FAERS Safety Report 19563096 (Version 1)
Quarter: 2021Q3

REPORT INFORMATION
  Report Type: Spontaneous
  Country: US (occurrence: US)
  Receive Date: 20210714
  Receipt Date: 20210714
  Transmission Date: 20211014
  Serious: No
  Sender: FDA-Public Use
  Company Number: US-PFIZER INC-2021709786

PATIENT
  Age: 64 Year
  Sex: Female
  Weight: 58.06 kg

DRUGS (2)
  1. CYTOMEL [Suspect]
     Active Substance: LIOTHYRONINE SODIUM
     Indication: HYPOTHYROIDISM
     Dosage: 25 UG, DAILY
  2. SYNTHROID [Concomitant]
     Active Substance: LEVOTHYROXINE SODIUM

REACTIONS (5)
  - Intentional product use issue [Unknown]
  - Drug ineffective [Unknown]
  - Malaise [Unknown]
  - Constipation [Unknown]
  - Sluggishness [Unknown]

NARRATIVE: CASE EVENT DATE: 2021
